FAERS Safety Report 5777000-2 (Version None)
Quarter: 2008Q2

REPORT INFORMATION
  Report Type: 
  Country: None (occurrence: None)
  Receive Date: 20080617
  Receipt Date: 20080617
  Transmission Date: 20081010
  Serious: No
  Sender: FDA-Public Use
  Company Number: None

PATIENT

DRUGS (1)
  1. ZICAM NASAL SPRAY [Suspect]
     Dates: start: 20080605, end: 20080608

REACTIONS (2)
  - AGEUSIA [None]
  - ANOSMIA [None]
